FAERS Safety Report 5934530-8 (Version None)
Quarter: 2008Q4

REPORT INFORMATION
  Report Type: 
  Country: None (occurrence: None)
  Receive Date: 20081029
  Receipt Date: 20081020
  Transmission Date: 20090506
  Serious: Yes (Other)
  Sender: FDA-Public Use
  Company Number: JP-PFIZER INC-2008088646

PATIENT
  Age: 85 Year
  Sex: Male

DRUGS (3)
  1. CARDENALIN [Suspect]
  2. RENIVACE [Concomitant]
  3. ADALAT [Concomitant]

REACTIONS (1)
  - BLOOD PRESSURE INCREASED [None]
